FAERS Safety Report 8941272 (Version 2)
Quarter: 2013Q1

REPORT INFORMATION
  Report Type: Spontaneous
  Country: IT (occurrence: IT)
  Receive Date: 20121203
  Receipt Date: 20130122
  Transmission Date: 20140127
  Serious: Yes (Hospitalization, Other)
  Sender: FDA-Public Use
  Company Number: IT-ELI_LILLY_AND_COMPANY-IT201211006158

PATIENT
  Age: 34 Year
  Sex: Male

DRUGS (4)
  1. ZYPREXA [Suspect]
     Indication: DEPRESSION
     Dosage: 10 MG, QD
     Route: 048
  2. ZYPREXA [Suspect]
     Dosage: 100 MG, SINGLE
     Dates: start: 20120924, end: 20120924
  3. GABAPENTIN [Concomitant]
     Indication: NEURALGIA
     Dosage: 900 MG, UNKNOWN
     Route: 048
  4. LORAZEPAM [Concomitant]
     Dosage: 2.5 MG, UNKNOWN
     Route: 048

REACTIONS (6)
  - Loss of consciousness [Recovered/Resolved]
  - Sopor [Recovering/Resolving]
  - Miosis [Recovering/Resolving]
  - Intentional overdose [Recovering/Resolving]
  - Insomnia [Unknown]
  - Off label use [Unknown]
